FAERS Safety Report 5656411-X (Version None)
Quarter: 2008Q1

REPORT INFORMATION
  Report Type: 
  Country: None (occurrence: None)
  Receive Date: 20080309
  Receipt Date: 20080104
  Transmission Date: 20080703
  Serious: No
  Sender: FDA-Public Use
  Company Number: US-BAYER-200810080BCC

PATIENT
  Age: 76 Year
  Sex: Female
  Weight: 19 kg

DRUGS (3)
  1. ALEVE COLD AND SINUS [Suspect]
     Indication: NASOPHARYNGITIS
     Route: 048
     Dates: start: 20071231, end: 20080101
  2. ALEVE COLD AND SINUS [Suspect]
     Route: 048
     Dates: start: 20080102
  3. NAPROSYN [Concomitant]

REACTIONS (2)
  - NASOPHARYNGITIS [None]
  - PYREXIA [None]
